FAERS Safety Report 4801628-7 (Version None)
Quarter: 2005Q4

REPORT INFORMATION
  Report Type: 
  Country: None (occurrence: None)
  Receive Date: 20051018
  Receipt Date: 20050926
  Transmission Date: 20060501
  Serious: Yes (Congenital Anomaly, Other)
  Sender: FDA-Public Use
  Company Number: BR-BRISTOL-MYERS SQUIBB COMPANY-13146147

PATIENT
  Age: 34 Week
  Sex: Male
  Weight: 2 kg

DRUGS (3)
  1. CYCLOPHOSPHAMIDE [Suspect]
     Indication: BREAST CANCER
     Route: 064
  2. FLUOROURACIL [Suspect]
     Indication: BREAST CANCER
     Route: 064
  3. ADRIAMYCIN PFS [Suspect]
     Indication: BREAST CANCER
     Route: 064

REACTIONS (15)
  - BICUSPID AORTIC VALVE [None]
  - BRAIN MALFORMATION [None]
  - CEREBRAL VENTRICLE DILATATION [None]
  - CONGENITAL CENTRAL NERVOUS SYSTEM ANOMALY [None]
  - CONGENITAL HAND MALFORMATION [None]
  - CONGENITAL NOSE MALFORMATION [None]
  - DEVELOPMENTAL DELAY [None]
  - DRUG EXPOSURE DURING PREGNANCY [None]
  - GROWTH RETARDATION [None]
  - HIGH ARCHED PALATE [None]
  - MICROCEPHALY [None]
  - NAIL DYSTROPHY [None]
  - NOSE DEFORMITY [None]
  - PREGNANCY [None]
  - SYNDACTYLY [None]
